FAERS Safety Report 6208846-4 (Version None)
Quarter: 2009Q2

REPORT INFORMATION
  Report Type: 
  Country: None (occurrence: None)
  Receive Date: 20090529
  Receipt Date: 20090521
  Transmission Date: 20091009
  Serious: Yes (Other)
  Sender: FDA-Public Use
  Company Number: A0785600A

PATIENT
  Age: 62 Year
  Sex: Female

DRUGS (3)
  1. ACYCLOVIR [Suspect]
     Route: 048
     Dates: start: 20080902, end: 20090306
  2. PREDNISOLONE [Concomitant]
  3. BETIMOL [Concomitant]

REACTIONS (3)
  - BLINDNESS [None]
  - DRUG INEFFECTIVE [None]
  - EYE INFECTION [None]
